FAERS Safety Report 10541902 (Version 2)
Quarter: 2015Q2

REPORT INFORMATION
  Report Type: Spontaneous
  Country: ZA (occurrence: ZA)
  Receive Date: 20141024
  Receipt Date: 20150428
  Transmission Date: 20150821
  Serious: Yes (Death, Hospitalization)
  Sender: FDA-Public Use
  Company Number: ZA-NAPPMUNDI-GBR-2014-0023152

PATIENT
  Age: 88 Year
  Sex: Male

DRUGS (9)
  1. WARFARIN [Concomitant]
     Active Substance: WARFARIN
     Indication: PERIPHERAL VENOUS DISEASE
     Dosage: 5 MG, UNK
     Route: 048
  2. TRAMCET [Concomitant]
     Active Substance: ACETAMINOPHEN\TRAMADOL
     Indication: ARTHRALGIA
     Dosage: UNK, DAILY
  3. TRI-PLEN [Concomitant]
     Dosage: 2.5 MG, DAILY
  4. LEUKERAN [Concomitant]
     Active Substance: CHLORAMBUCIL
     Indication: PROSTATE CANCER
  5. SOVENOR 5 MCG/H [Suspect]
     Active Substance: BUPRENORPHINE
     Indication: ARTHRALGIA
     Dosage: T5 MCG, Q1H
     Route: 062
     Dates: start: 20141010, end: 20141011
  6. CATAFLAM                           /00372302/ [Concomitant]
     Active Substance: DICLOFENAC POTASSIUM
     Indication: ARTHRALGIA
     Dosage: UNK, DAILY
  7. COMPRAL                            /00391201/ [Concomitant]
     Indication: ARTHRALGIA
     Dosage: UNK, DAILY
  8. BISOPROLOL FUMARATE HYDROCHLOROTHIAZIDE [Concomitant]
     Active Substance: BISOPROLOL FUMARATE\HYDROCHLOROTHIAZIDE
     Dosage: 10 MG, DAILY
  9. ASPAVOR [Concomitant]
     Active Substance: ATORVASTATIN
     Dosage: 10 MG, DAILY

REACTIONS (6)
  - Acute myocardial infarction [Fatal]
  - Drug hypersensitivity [Unknown]
  - Vomiting [Unknown]
  - Device adhesion issue [Unknown]
  - Hypotension [Not Recovered/Not Resolved]
  - Nausea [Unknown]

NARRATIVE: CASE EVENT DATE: 20141011
